FAERS Safety Report 19978494 (Version 1)
Quarter: 2021Q4

REPORT INFORMATION
  Report Type: Spontaneous
  Country: US (occurrence: US)
  Receive Date: 20211021
  Receipt Date: 20211021
  Transmission Date: 20220303
  Serious: Yes (Hospitalization)
  Sender: FDA-Public Use
  Company Number: None

PATIENT
  Age: 59 Year
  Sex: Female
  Weight: 92 kg

DRUGS (1)
  1. PROPOFOL [Suspect]
     Active Substance: PROPOFOL
     Indication: Surgery
     Dates: start: 20211001, end: 20211001

REACTIONS (6)
  - Delayed recovery from anaesthesia [None]
  - Unresponsive to stimuli [None]
  - Cerebrovascular accident [None]
  - Tremor [None]
  - Sedation [None]
  - Mental status changes [None]

NARRATIVE: CASE EVENT DATE: 20211001
